FAERS Safety Report 7965698-X (Version None)
Quarter: 2011Q4

REPORT INFORMATION
  Report Type: 
  Country: None (occurrence: None)
  Receive Date: 20111208
  Receipt Date: 20111202
  Transmission Date: 20120403
  Serious: Yes (Life-Threatening, Hospitalization)
  Sender: FDA-Public Use
  Company Number: BG-ELI_LILLY_AND_COMPANY-BG201112001368

PATIENT
  Age: 60 Year
  Sex: Male

DRUGS (4)
  1. EFFIENT [Suspect]
     Indication: PERCUTANEOUS CORONARY INTERVENTION
     Dosage: 10 MG, UNK
     Dates: start: 20111006, end: 20111111
  2. ASPIRIN [Concomitant]
     Indication: TRANSIENT ISCHAEMIC ATTACK
     Dosage: UNK, UNKNOWN
     Route: 065
  3. ISODINIT [Concomitant]
     Dosage: UNK, UNKNOWN
     Route: 065
  4. ROSUVASTATIN [Concomitant]
     Dosage: UNK, UNKNOWN
     Route: 065

REACTIONS (6)
  - CIRCULATORY COLLAPSE [None]
  - PANCYTOPENIA [None]
  - BODY TEMPERATURE INCREASED [None]
  - POOR PERIPHERAL CIRCULATION [None]
  - ASTHENIA [None]
  - PARAESTHESIA [None]
